FAERS Safety Report 10039519 (Version 2)
Quarter: 2014Q2

REPORT INFORMATION
  Report Type: Spontaneous
  Country: GB (occurrence: GB)
  Receive Date: 20140326
  Receipt Date: 20140416
  Transmission Date: 20141212
  Serious: Yes (Other)
  Sender: FDA-Public Use
  Company Number: PHFR2014GB002360

PATIENT
  Sex: Female

DRUGS (1)
  1. CLOZARIL [Suspect]
     Indication: SCHIZOPHRENIA
     Dosage: UNK
     Route: 048
     Dates: start: 20130923

REACTIONS (5)
  - Cardiomyopathy [Unknown]
  - Cardiac disorder [Unknown]
  - Dilatation ventricular [Unknown]
  - Systolic dysfunction [Unknown]
  - Tachycardia [Unknown]
